FAERS Safety Report 6874576-9 (Version None)
Quarter: 2010Q2

REPORT INFORMATION
  Report Type: 
  Country: None (occurrence: None)
  Receive Date: 20100609
  Receipt Date: 20090710
  Transmission Date: 20101027
  Serious: No
  Sender: FDA-Public Use
  Company Number: 2009-00331

PATIENT
  Sex: Female
  Weight: 54.4316 kg

DRUGS (2)
  1. ZICAM ALLERGY RELIEF NASAL GEL [Suspect]
     Dosage: QID X 5 DAYS
     Dates: start: 20090610, end: 20090615
  2. ZICAM EXTREME CONGESTION RELIEF [Suspect]
     Dosage: QID X 5 DAYS
     Dates: start: 20090610, end: 20090615

REACTIONS (1)
  - ANOSMIA [None]
